FAERS Safety Report 15156095 (Version 1)
Quarter: 2018Q3

REPORT INFORMATION
  Report Type: Other
  Country: FR (occurrence: FR)
  Receive Date: 20180717
  Receipt Date: 20180717
  Transmission Date: 20181010
  Serious: Yes (Other)
  Sender: FDA-Public Use
  Company Number: FR-GE HEALTHCARE LIFE SCIENCES-2018CSU002760

PATIENT

DRUGS (11)
  1. VISIPAQUE [Suspect]
     Active Substance: IODIXANOL
     Indication: PRODUCT USED FOR UNKNOWN INDICATION
     Dosage: UNK UNK, SINGLE
     Route: 042
  2. PREVISCAN                          /00789001/ [Concomitant]
     Active Substance: FLUINDIONE
  3. DAFALGAN [Concomitant]
     Active Substance: ACETAMINOPHEN
  4. AMIODARONE [Concomitant]
     Active Substance: AMIODARONE
  5. AERIUS [Concomitant]
     Active Substance: DESLORATADINE
  6. LASILIX FAIBLE [Concomitant]
     Active Substance: FUROSEMIDE
  7. TARDYFERON [Concomitant]
     Active Substance: FERROUS SULFATE
  8. BISOCE [Concomitant]
     Active Substance: BISOPROLOL
  9. RAMIPRIL. [Concomitant]
     Active Substance: RAMIPRIL
  10. EUPANTOL [Suspect]
     Active Substance: PANTOPRAZOLE SODIUM
     Indication: PRODUCT USED FOR UNKNOWN INDICATION
     Dosage: UNK
     Route: 048
     Dates: start: 20180321, end: 20180330
  11. DEXERYL                            /01579901/ [Concomitant]
     Active Substance: GLYCERIN\MINERAL OIL\PETROLATUM

REACTIONS (2)
  - Condition aggravated [Recovered/Resolved]
  - Rash pruritic [Recovered/Resolved]

NARRATIVE: CASE EVENT DATE: 20180330
